FAERS Safety Report 24351379 (Version 1)
Quarter: 2024Q3

REPORT INFORMATION
  Report Type: Report from Study
  Country: US (occurrence: US)
  Receive Date: 20240923
  Receipt Date: 20240923
  Transmission Date: 20241017
  Serious: No
  Sender: ROCHE
  Company Number: US-ROCHE-3540406

PATIENT
  Age: 82 Year
  Sex: Male

DRUGS (1)
  1. HERCEPTIN [Suspect]
     Active Substance: TRASTUZUMAB
     Indication: Salivary gland cancer
     Dosage: VIAL, DATE OF SERVICE: 12/MAR/2024
     Route: 041

REACTIONS (2)
  - Off label use [Unknown]
  - No adverse event [Unknown]
